FAERS Safety Report 5220586-7 (Version None)
Quarter: 2007Q1

REPORT INFORMATION
  Report Type: 
  Country: None (occurrence: None)
  Receive Date: 20070125
  Receipt Date: 20070125
  Transmission Date: 20070707
  Serious: Yes (Hospitalization)
  Sender: FDA-Public Use
  Company Number: None

PATIENT
  Sex: Male

DRUGS (3)
  1. AVELOX [Suspect]
     Indication: BRONCHITIS
     Dosage: PO STARTED 1 WEEK PRIOR TO ER VISIT
     Route: 048
  2. ACCUPRIL [Concomitant]
  3. ATENOLOL [Concomitant]

REACTIONS (2)
  - ASTHENIA [None]
  - DIZZINESS [None]
